FAERS Safety Report 14343023 (Version 2)
Quarter: 2018Q3

REPORT INFORMATION
  Report Type: Spontaneous
  Country: JP (occurrence: JP)
  Receive Date: 20180102
  Receipt Date: 20180720
  Transmission Date: 20181010
  Serious: Yes (Other)
  Sender: FDA-Public Use
  Company Number: JP-JNJFOC-20171236913

PATIENT
  Age: 62 Year
  Sex: Male
  Weight: 73 kg

DRUGS (6)
  1. MAINTATE [Concomitant]
     Active Substance: BISOPROLOL FUMARATE
     Route: 048
     Dates: start: 20120606
  2. XARELTO [Concomitant]
     Active Substance: RIVAROXABAN
     Route: 048
     Dates: start: 20131018, end: 20171215
  3. IRBETAN [Concomitant]
     Active Substance: IRBESARTAN
     Route: 048
     Dates: start: 20130726
  4. AMARYL [Concomitant]
     Active Substance: GLIMEPIRIDE
     Route: 048
     Dates: start: 20151014, end: 20171215
  5. CANAGLU [Suspect]
     Active Substance: CANAGLIFLOZIN
     Indication: TYPE 2 DIABETES MELLITUS
     Route: 048
     Dates: start: 20160618, end: 20171215
  6. CONIEL [Concomitant]
     Active Substance: BENIDIPINE HYDROCHLORIDE
     Route: 048
     Dates: start: 20120704

REACTIONS (1)
  - Peripheral artery occlusion [Recovering/Resolving]

NARRATIVE: CASE EVENT DATE: 20171212
